FAERS Safety Report 8193453 (Version 2)
Quarter: 2013Q1

REPORT INFORMATION
  Report Type: Spontaneous
  Country: US (occurrence: US)
  Receive Date: 20111021
  Receipt Date: 20130318
  Transmission Date: 20140127
  Serious: No
  Sender: FDA-Public Use
  Company Number: US-PFIZER INC-2011251387

PATIENT
  Age: 42 Year
  Sex: Female
  Weight: 120 kg

DRUGS (6)
  1. SIMVASTATIN [Suspect]
     Dosage: UNK
     Route: 065
  2. ERYTHROMYCIN [Suspect]
     Dosage: UNK
  3. SUMATRIPTAN SUCCINATE [Suspect]
     Dosage: UNK
  4. ZOLPIDEM TARTRATE [Suspect]
     Dosage: UNK
  5. FLUOXETINE HCL [Suspect]
     Dosage: UNK
  6. TETANUS TOXOID [Suspect]
     Dosage: UNK

REACTIONS (1)
  - Drug hypersensitivity [Unknown]
